FAERS Safety Report 17706633 (Version 1)
Quarter: 2020Q2

REPORT INFORMATION
  Report Type: Spontaneous
  Country: GB (occurrence: GB)
  Receive Date: 20200424
  Receipt Date: 20200424
  Transmission Date: 20200714
  Serious: Yes (Hospitalization)
  Sender: FDA-Public Use
  Company Number: GB-009507513-2004GBR003844

PATIENT
  Age: 85 Year
  Sex: Female

DRUGS (8)
  1. LANSOPRAZOLE. [Suspect]
     Active Substance: LANSOPRAZOLE
     Dosage: IN MORNING; PHARMACEUTICAL FORM: GASTRO-RESISTANT CAPSULE
     Route: 048
     Dates: end: 20190924
  2. BECLOMETHASONE DIPROPIONATE [Concomitant]
     Active Substance: BECLOMETHASONE DIPROPIONATE
     Dosage: PUFF
     Route: 050
  3. ALBUTEROL. [Concomitant]
     Active Substance: ALBUTEROL
     Dosage: 100 MICROGRAMS PER DOSE, ONE OR TWO PUFFS AS NECESSARY
     Route: 050
  4. INDAPAMIDE. [Suspect]
     Active Substance: INDAPAMIDE
     Dosage: IN MORNING
     Route: 048
     Dates: end: 20190924
  5. ATORVASTATIN [Concomitant]
     Active Substance: ATORVASTATIN
     Dosage: 20 MILLIGRAM
     Route: 048
  6. FORMOTEROL FUMARATE [Concomitant]
     Active Substance: FORMOTEROL FUMARATE
     Dosage: PUFF
     Route: 050
  7. LISINOPRIL. [Suspect]
     Active Substance: LISINOPRIL
     Dosage: IN MORNING
     Route: 048
     Dates: end: 20190924
  8. ADCAL (CALCIUM CARBONATE) [Suspect]
     Active Substance: CALCIUM CARBONATE
     Dosage: 400 UNIT/1.5 G
     Route: 048
     Dates: end: 20190924

REACTIONS (5)
  - Delirium [Unknown]
  - Orthostatic hypotension [Unknown]
  - Blood electrolytes abnormal [Unknown]
  - Hypercalcaemia [Recovering/Resolving]
  - Hypomagnesaemia [Recovered/Resolved]

NARRATIVE: CASE EVENT DATE: 20190923
